FAERS Safety Report 13359909 (Version 2)
Quarter: 2017Q1

REPORT INFORMATION
  Report Type: Spontaneous
  Country: NL (occurrence: NL)
  Receive Date: 20170322
  Receipt Date: 20170324
  Transmission Date: 20170429
  Serious: Yes (Death, Hospitalization)
  Sender: FDA-Public Use
  Company Number: NL-JNJFOC-20170321330

PATIENT
  Age: 73 Year
  Sex: Male
  Weight: 88 kg

DRUGS (8)
  1. IMBRUVICA [Suspect]
     Active Substance: IBRUTINIB
     Indication: CHRONIC LYMPHOCYTIC LEUKAEMIA
     Route: 048
     Dates: start: 20161125, end: 20170314
  2. OMEPRAZOLE. [Concomitant]
     Active Substance: OMEPRAZOLE
     Route: 048
  3. FOSINOPRIL [Concomitant]
     Active Substance: FOSINOPRIL
     Route: 048
  4. CIPROFLOXACIN. [Interacting]
     Active Substance: CIPROFLOXACIN
     Indication: URINARY TRACT INFECTION
     Dosage: 500 MG OR 1000 MG DAILY (2 X 250 MG OR 2 X 500 MG)
     Route: 048
     Dates: start: 20170202, end: 20170216
  5. OXYCODONE [Concomitant]
     Active Substance: OXYCODONE
     Route: 048
  6. OXYCODONE [Concomitant]
     Active Substance: OXYCODONE
     Route: 048
  7. HYDROCHLOROTHIAZIDE. [Concomitant]
     Active Substance: HYDROCHLOROTHIAZIDE
     Route: 048
  8. AMILORIDE [Concomitant]
     Active Substance: AMILORIDE
     Route: 048

REACTIONS (4)
  - Necrosis [Fatal]
  - Acute kidney injury [Fatal]
  - Lactic acidosis [Fatal]
  - Drug interaction [Unknown]

NARRATIVE: CASE EVENT DATE: 20170312
